FAERS Safety Report 8600734-9 (Version None)
Quarter: 2012Q3

REPORT INFORMATION
  Report Type: 
  Country: None (occurrence: None)
  Receive Date: 20120817
  Receipt Date: 20120806
  Transmission Date: 20120928
  Serious: Yes (Other)
  Sender: FDA-Public Use
  Company Number: TH-RANBAXY-2012RR-58771

PATIENT
  Age: 45 Year
  Sex: Female

DRUGS (2)
  1. GLYBURIDE [Concomitant]
     Indication: DIABETES MELLITUS
     Dosage: 5 MG/DAY
     Route: 065
  2. METFORMIN HCL [Suspect]
     Indication: DIABETES MELLITUS
     Dosage: 500 MG/ DAY, EVERY MORNING
     Route: 048

REACTIONS (1)
  - INSOMNIA [None]
